FAERS Safety Report 6272573-8 (Version None)
Quarter: 2009Q3

REPORT INFORMATION
  Report Type: 
  Country: None (occurrence: None)
  Receive Date: 20090713
  Receipt Date: 20090331
  Transmission Date: 20100115
  Serious: Yes (Hospitalization)
  Sender: FDA-Public Use
  Company Number: 625005

PATIENT
  Age: 63 Year
  Sex: Female
  Weight: 84.8 kg

DRUGS (1)
  1. BONIVA [Suspect]
     Indication: OSTEOPOROSIS
     Dosage: 150 MG  1 PER MONTH  ORAL
     Route: 048
     Dates: start: 20080626, end: 20080716

REACTIONS (1)
  - MYALGIA [None]
